FAERS Safety Report 24064064 (Version 1)
Quarter: 2024Q3

REPORT INFORMATION
  Report Type: Spontaneous
  Country: FR (occurrence: FR)
  Receive Date: 20240709
  Receipt Date: 20240709
  Transmission Date: 20241017
  Serious: Yes (Other)
  Sender: BAXTER
  Company Number: None

PATIENT
  Age: 22 Year
  Sex: Female
  Weight: 58 kg

DRUGS (1)
  1. SCOPOLAMINE [Suspect]
     Active Substance: SCOPOLAMINE
     Indication: Accidental exposure to product
     Dosage: 1 DF (DOSAGE FORM) ONCE TOTAL
     Route: 031
     Dates: start: 20240623, end: 20240623

REACTIONS (1)
  - Anisocoria [Recovered/Resolved]

NARRATIVE: CASE EVENT DATE: 20240623
